FAERS Safety Report 7087368-5 (Version None)
Quarter: 2010Q4

REPORT INFORMATION
  Report Type: 
  Country: None (occurrence: None)
  Receive Date: 20101108
  Receipt Date: 20101029
  Transmission Date: 20110411
  Serious: Yes (Hospitalization)
  Sender: FDA-Public Use
  Company Number: US-BIOGENIDEC-2010BI035366

PATIENT
  Age: 48 Year
  Sex: Female

DRUGS (3)
  1. AVONEX [Suspect]
     Indication: MULTIPLE SCLEROSIS
     Route: 030
     Dates: start: 20070101
  2. AVONEX [Suspect]
     Route: 030
  3. KEPPRA [Concomitant]
     Indication: CONVULSION
     Dates: end: 20101001

REACTIONS (2)
  - COMPLEX PARTIAL SEIZURES [None]
  - PARTIAL SEIZURES WITH SECONDARY GENERALISATION [None]
